FAERS Safety Report 9766056 (Version 1)
Quarter: 2013Q4

REPORT INFORMATION
  Report Type: Spontaneous
  Country: US (occurrence: US)
  Receive Date: 20131217
  Receipt Date: 20131217
  Transmission Date: 20140711
  Serious: Yes (Hospitalization)
  Sender: FDA-Public Use
  Company Number: US-JNJFOC-20131203668

PATIENT
  Sex: Female

DRUGS (2)
  1. FENTANYL [Suspect]
     Indication: PAIN
     Dosage: TWO 75 UG/HR PATCHES
     Route: 062
     Dates: start: 2008
  2. DURAGESIC [Suspect]
     Indication: PAIN
     Dosage: TWO 75 UG/HR PATCHES
     Route: 062
     Dates: start: 201307

REACTIONS (7)
  - Coma [Recovered/Resolved]
  - Blood pressure abnormal [Recovered/Resolved]
  - Dehydration [Recovered/Resolved]
  - Toxicity to various agents [Recovered/Resolved]
  - Hearing impaired [Not Recovered/Not Resolved]
  - Hyperhidrosis [Not Recovered/Not Resolved]
  - Product quality issue [Unknown]
